FAERS Safety Report 20075744 (Version 1)
Quarter: 2021Q4

REPORT INFORMATION
  Report Type: Spontaneous
  Country: US (occurrence: None)
  Receive Date: 20211115
  Receipt Date: 20211115
  Transmission Date: 20220303
  Serious: No
  Sender: FDA-Public Use
  Company Number: None

PATIENT
  Sex: Female

DRUGS (2)
  1. GAMMAGARD LIQUID [Suspect]
     Active Substance: HUMAN IMMUNOGLOBULIN G
     Indication: Immunodeficiency common variable
     Dosage: FREQUENCY : EVERY OTHER WEEK;?
     Route: 058
  2. GAMMAGARD LIQUID [Suspect]
     Active Substance: HUMAN IMMUNOGLOBULIN G
     Indication: Immunodeficiency common variable
     Dosage: FREQUENCY : EVERY OTHER WEEK;?
     Route: 058

REACTIONS (11)
  - Cardiac failure congestive [None]
  - Atrial fibrillation [None]
  - Myocardial infarction [None]
  - Bladder disorder [None]
  - Diabetes mellitus [None]
  - Platelet count decreased [None]
  - Urine output decreased [None]
  - Hepatic cirrhosis [None]
  - Swelling [None]
  - Dyspnoea [None]
  - Contusion [None]
